FAERS Safety Report 5099301-6 (Version None)
Quarter: 2006Q3

REPORT INFORMATION
  Report Type: 
  Country: None (occurrence: None)
  Receive Date: 20060728
  Receipt Date: 20060505
  Transmission Date: 20061208
  Serious: No
  Sender: FDA-Public Use
  Company Number: COT_0517_2006

PATIENT
  Age: 30 Year
  Sex: Male
  Weight: 77.1115 kg

DRUGS (7)
  1. VENTAVIS [Suspect]
     Indication: PULMONARY HYPERTENSION
     Dosage: 5 MCG 8XD IH
     Dates: start: 20060323
  2. ALDACTONE [Concomitant]
  3. DIGOXIN [Concomitant]
  4. ZOLOFT [Concomitant]
  5. COUMADIN [Concomitant]
  6. SILDENAFIL [Concomitant]
  7. TRACLEER [Concomitant]

REACTIONS (1)
  - PHOTOSENSITIVITY REACTION [None]
